FAERS Safety Report 17124906 (Version 2)
Quarter: 2020Q1

REPORT INFORMATION
  Report Type: Spontaneous
  Country: FR (occurrence: FR)
  Receive Date: 20191206
  Receipt Date: 20200116
  Transmission Date: 20200409
  Serious: Yes (Hospitalization, Other)
  Sender: FDA-Public Use
  Company Number: FR-009507513-1912FRA002841

PATIENT
  Age: 61 Year
  Sex: Male

DRUGS (2)
  1. SOVALDI [Suspect]
     Active Substance: SOFOSBUVIR
     Indication: HEPATITIS C
     Dosage: 400 MILLIGRAM, EVERY 1 DAY
     Route: 048
     Dates: start: 20140407, end: 20140921
  2. REBETOL [Suspect]
     Active Substance: RIBAVIRIN
     Indication: HEPATITIS C
     Dosage: 400 MILLIGRAM, EVERY 1 DAY
     Route: 048
     Dates: start: 20140407, end: 20140921

REACTIONS (2)
  - Cholestasis [Unknown]
  - Cholangitis [Recovering/Resolving]

NARRATIVE: CASE EVENT DATE: 20141124
